FAERS Safety Report 9073827 (Version 1)
Quarter: 2013Q1

REPORT INFORMATION
  Report Type: Spontaneous
  Country: DE (occurrence: DE)
  Receive Date: 20130129
  Receipt Date: 20130129
  Transmission Date: 20140127
  Serious: Yes (Other)
  Sender: FDA-Public Use
  Company Number: DE-ELI_LILLY_AND_COMPANY-DE201301006010

PATIENT
  Sex: Male

DRUGS (2)
  1. GEMZAR [Suspect]
     Indication: PANCREATIC CARCINOMA
     Dosage: UNK
     Dates: start: 20120806
  2. GEMZAR [Suspect]
     Dosage: UNK
     Dates: start: 20120910

REACTIONS (2)
  - Liver scan abnormal [Recovered/Resolved]
  - Leukopenia [Unknown]
